FAERS Safety Report 13835835 (Version 1)
Quarter: 2017Q3

REPORT INFORMATION
  Report Type: Spontaneous
  Country: CN (occurrence: CN)
  Receive Date: 20170804
  Receipt Date: 20170804
  Transmission Date: 20171127
  Serious: Yes (Hospitalization)
  Sender: FDA-Public Use
  Company Number: CN-JNJFOC-20170802134

PATIENT
  Age: 76 Year
  Sex: Male
  Weight: 70 kg

DRUGS (7)
  1. AESCINE [Suspect]
     Active Substance: ESCIN
     Indication: MASS
     Route: 041
     Dates: start: 20170524, end: 20170526
  2. AESCINE [Suspect]
     Active Substance: ESCIN
     Indication: GOITRE
     Route: 041
     Dates: start: 20170524, end: 20170526
  3. DYNASTAT [Suspect]
     Active Substance: PARECOXIB SODIUM
     Indication: ANALGESIC THERAPY
     Route: 041
     Dates: start: 20170524, end: 20170526
  4. XARELTO [Suspect]
     Active Substance: RIVAROXABAN
     Indication: COAGULOPATHY
     Route: 048
     Dates: start: 20170520, end: 20170529
  5. LIPITOR [Suspect]
     Active Substance: ATORVASTATIN CALCIUM
     Indication: PLAGUE
     Route: 048
     Dates: start: 20170520, end: 20170526
  6. AESCINE [Suspect]
     Active Substance: ESCIN
     Indication: SWELLING
     Route: 041
     Dates: start: 20170524, end: 20170526
  7. CINEPAZIDE MALEATE [Suspect]
     Active Substance: CINEPAZIDE MALEATE
     Indication: CARDIOVASCULAR DISORDER
     Route: 041
     Dates: start: 20170524, end: 20170526

REACTIONS (2)
  - Hepatocellular injury [Recovering/Resolving]
  - Renal impairment [Recovering/Resolving]

NARRATIVE: CASE EVENT DATE: 20170525
